FAERS Safety Report 6600155-4 (Version None)
Quarter: 2010Q1

REPORT INFORMATION
  Report Type: 
  Country: None (occurrence: None)
  Receive Date: 20100224
  Receipt Date: 20100127
  Transmission Date: 20100710
  Serious: Yes (Other)
  Sender: FDA-Public Use
  Company Number: A0841667A

PATIENT
  Age: 76 Year
  Sex: Male

DRUGS (2)
  1. PROMACTA [Suspect]
     Indication: IDIOPATHIC THROMBOCYTOPENIC PURPURA
     Dosage: 75MG PER DAY
     Route: 048
     Dates: start: 20090715, end: 20091119
  2. CORTICOSTEROIDS [Concomitant]
     Indication: IDIOPATHIC THROMBOCYTOPENIC PURPURA

REACTIONS (1)
  - DRUG INEFFECTIVE [None]
